FAERS Safety Report 5994160-9 (Version None)
Quarter: 2008Q4

REPORT INFORMATION
  Report Type: 
  Country: None (occurrence: None)
  Receive Date: 20081212
  Receipt Date: 20080902
  Transmission Date: 20090506
  Serious: No
  Sender: FDA-Public Use
  Company Number: US-ABBOTT-08P-163-0473746-00

PATIENT
  Sex: Female

DRUGS (5)
  1. HUMIRA [Suspect]
     Indication: RHEUMATOID ARTHRITIS
     Route: 058
     Dates: start: 20080808
  2. CYCLOBENZAPRINE HCL [Concomitant]
     Indication: MUSCLE SPASMS
  3. ALENDRONATE SODIUM [Concomitant]
     Indication: OSTEOPOROSIS
  4. NAPROXEN SODIUM [Concomitant]
     Indication: ARTHRALGIA
  5. HYDROCODONE BITARTRATE [Concomitant]
     Indication: ARTHRALGIA
     Dosage: 1 PILL AT BEDTIME

REACTIONS (2)
  - RASH ERYTHEMATOUS [None]
  - RASH PRURITIC [None]
